FAERS Safety Report 5033797-0 (Version None)
Quarter: 2006Q2

REPORT INFORMATION
  Report Type: 
  Country: None (occurrence: None)
  Receive Date: 20060620
  Receipt Date: 20060612
  Transmission Date: 20061013
  Serious: Yes (Hospitalization, Disabling)
  Sender: FDA-Public Use
  Company Number: 226201

PATIENT
  Age: 79 Year
  Sex: Male

DRUGS (1)
  1. ACTIVACIN (ALTEPLASE) PWDR + SOLVENT, INFUSION SOLN [Suspect]

REACTIONS (5)
  - CEREBRAL ARTERY EMBOLISM [None]
  - CEREBRAL HAEMORRHAGE [None]
  - CEREBRAL INFARCTION [None]
  - EMBOLIC CEREBRAL INFARCTION [None]
  - PNEUMONIA ASPIRATION [None]
